FAERS Safety Report 13363492 (Version 1)
Quarter: 2017Q1

REPORT INFORMATION
  Report Type: Spontaneous
  Country: SI (occurrence: SI)
  Receive Date: 20170323
  Receipt Date: 20170323
  Transmission Date: 20170429
  Serious: Yes (Death, Other)
  Sender: FDA-Public Use
  Company Number: SI-JNJFOC-20170322354

PATIENT

DRUGS (2)
  1. XARELTO [Suspect]
     Active Substance: RIVAROXABAN
     Indication: EMBOLISM VENOUS
     Route: 048
  2. XARELTO [Suspect]
     Active Substance: RIVAROXABAN
     Indication: PULMONARY EMBOLISM
     Route: 048

REACTIONS (11)
  - Haematochezia [Unknown]
  - Genital haemorrhage [Unknown]
  - Haemorrhage [Fatal]
  - Death [Fatal]
  - Haematuria [Unknown]
  - Embolism venous [Unknown]
  - Thyroid haemorrhage [Unknown]
  - Central nervous system haemorrhage [Unknown]
  - Cerebrovascular accident [Unknown]
  - Myocardial infarction [Unknown]
  - Haemothorax [Unknown]
